FAERS Safety Report 21258668 (Version 1)
Quarter: 2022Q3

REPORT INFORMATION
  Report Type: Spontaneous
  Country: MA (occurrence: MA)
  Receive Date: 20220826
  Receipt Date: 20220826
  Transmission Date: 20221027
  Serious: Yes (Other)
  Sender: FDA-Public Use
  Company Number: MA-ASTELLAS-2022US030201

PATIENT
  Age: 36 Year
  Sex: Male

DRUGS (2)
  1. AMPHOTERICIN B [Suspect]
     Active Substance: AMPHOTERICIN B
     Indication: Visceral leishmaniasis
     Dosage: 100 MG EVERY 2 DAYS
     Route: 065
  2. MEGLUMINE ANTIMONIATE [Concomitant]
     Active Substance: MEGLUMINE ANTIMONIATE
     Indication: Product used for unknown indication
     Dosage: UNK UNK, UNKNOWN FREQ.
     Route: 065

REACTIONS (2)
  - Drug ineffective [Unknown]
  - Off label use [Recovered/Resolved]
